FAERS Safety Report 10245135 (Version 2)
Quarter: 2014Q3

REPORT INFORMATION
  Report Type: Spontaneous
  Country: US (occurrence: US)
  Receive Date: 20140618
  Receipt Date: 20140708
  Transmission Date: 20150326
  Serious: Yes (Life-Threatening, Hospitalization, Other)
  Sender: FDA-Public Use
  Company Number: PHEH2014US012073

PATIENT
  Age: 58 Year
  Sex: Male
  Weight: 79.5 kg

DRUGS (24)
  1. ZYKADIA [Suspect]
     Active Substance: CERITINIB
     Indication: NON-SMALL CELL LUNG CANCER
     Dosage: 750 MG, DAILY
     Route: 048
     Dates: start: 20140602, end: 20140608
  2. ATIVAN [Concomitant]
     Active Substance: LORAZEPAM
     Dosage: 1 MG, QD
     Route: 042
     Dates: start: 20140608, end: 20140614
  3. HEPARIN [Concomitant]
     Active Substance: HEPARIN SODIUM
     Dosage: 5000 U, Q8H
     Route: 058
     Dates: start: 20140609, end: 20140614
  4. KCL [Concomitant]
     Active Substance: POTASSIUM CHLORIDE
     Dosage: 1000 ML, UNK
     Route: 042
     Dates: start: 20140602, end: 20140604
  5. PHENERGAN [Concomitant]
     Active Substance: PROMETHAZINE HYDROCHLORIDE
     Indication: NAUSEA
     Dosage: 25 MG, Q6H (PRN)
     Route: 042
     Dates: start: 20140602, end: 20140614
  6. VANCOMYCIN [Concomitant]
     Active Substance: VANCOMYCIN
     Dosage: UNK UKN, Q12H (167ML/HR INFUSE)
     Route: 042
     Dates: start: 20140602, end: 20140606
  7. KCL [Concomitant]
     Active Substance: POTASSIUM CHLORIDE
     Dosage: 1000 ML, UNK
     Route: 042
     Dates: start: 20140610, end: 20140614
  8. LOVENOX [Concomitant]
     Active Substance: ENOXAPARIN SODIUM
     Dosage: 90 MG, Q12H
     Route: 058
     Dates: start: 20140602, end: 20140614
  9. MORPHINE [Concomitant]
     Active Substance: MORPHINE
     Dosage: 2 TO 4MG, Q2H (PRN)
     Route: 042
     Dates: start: 20140606, end: 20140614
  10. ZOFRAN [Concomitant]
     Active Substance: ONDANSETRON HYDROCHLORIDE
     Dosage: 8 MG PER 4 ML, Q8H
     Route: 042
     Dates: start: 20140607, end: 20140612
  11. PROTONIX [Concomitant]
     Active Substance: PANTOPRAZOLE SODIUM
     Dosage: 1 DF (40MG PER 10ML), DAILY
     Route: 042
     Dates: start: 20140602, end: 20140614
  12. DECADRON//DEXAMETHASONE ACETATE [Concomitant]
     Dosage: 1 DF, QD
     Route: 048
     Dates: start: 20140602, end: 20140603
  13. NORMAL SALINE [Concomitant]
     Active Substance: SODIUM CHLORIDE
     Dosage: 5 ML, Q8H
     Route: 042
     Dates: start: 20140504, end: 20140614
  14. COMPAZINE [Concomitant]
     Active Substance: PROCHLORPERAZINE MALEATE
     Dosage: 10 MG, Q6H (PRN)
     Route: 048
     Dates: start: 20140606, end: 20140614
  15. ATIVAN [Concomitant]
     Active Substance: LORAZEPAM
     Indication: NAUSEA
     Dosage: 1 MG, Q4H (PRN)
     Route: 042
     Dates: start: 20140602, end: 20140606
  16. PHENERGAN [Concomitant]
     Active Substance: PROMETHAZINE HYDROCHLORIDE
     Indication: VOMITING
  17. MORPHINE [Concomitant]
     Active Substance: MORPHINE
     Indication: PAIN
     Dosage: 5 MG, Q2H (PRN)
     Route: 042
     Dates: start: 20140603
  18. NORCO [Concomitant]
     Active Substance: ACETAMINOPHEN\HYDROCODONE BITARTRATE
     Dosage: 1 DF (5MG/325MG)
     Route: 048
     Dates: start: 20140602, end: 20140602
  19. ZYPREXA [Concomitant]
     Active Substance: OLANZAPINE
     Dosage: 1 DF, QHS
     Route: 048
     Dates: start: 20140602, end: 20140614
  20. BACTROBAN [Concomitant]
     Active Substance: MUPIROCIN\MUPIROCIN CALCIUM
     Dosage: 1 APPLICATION, BID
     Route: 061
     Dates: start: 20140602, end: 20140614
  21. MUPIROCIN. [Concomitant]
     Active Substance: MUPIROCIN
     Dosage: UNK UKN, BID (1 APPLICATION)
     Route: 061
     Dates: start: 20140602, end: 20140614
  22. PRED FORTE [Concomitant]
     Active Substance: PREDNISOLONE ACETATE
     Dosage: 1 DRP, TID
     Route: 047
     Dates: start: 20140602, end: 20140614
  23. ZOFRAN [Concomitant]
     Active Substance: ONDANSETRON HYDROCHLORIDE
     Dosage: 8 MG PER 4 ML, Q12H (PRN)
     Route: 042
     Dates: start: 20140612, end: 20140614
  24. ROXICODONE [Concomitant]
     Active Substance: OXYCODONE HYDROCHLORIDE
     Indication: PAIN
     Dosage: 5 MG, Q2H (PRN)
     Route: 048
     Dates: start: 20140602, end: 20140603

REACTIONS (13)
  - Blood creatinine increased [Recovered/Resolved]
  - Infection [Unknown]
  - Cachexia [Unknown]
  - Renal tubular necrosis [Unknown]
  - Dehydration [Unknown]
  - Dry mouth [Unknown]
  - Pyelocaliectasis [Unknown]
  - Alkalosis hypochloraemic [Unknown]
  - Skin turgor decreased [Unknown]
  - Nephropathy [Unknown]
  - Alopecia [Unknown]
  - Renal failure acute [Recovered/Resolved]
  - Hypovolaemia [Unknown]

NARRATIVE: CASE EVENT DATE: 20140608
